FAERS Safety Report 16156050 (Version 1)
Quarter: 2019Q2

REPORT INFORMATION
  Report Type: Spontaneous
  Country: US (occurrence: US)
  Receive Date: 20190404
  Receipt Date: 20190404
  Transmission Date: 20190711
  Serious: No
  Sender: FDA-Public Use
  Company Number: US-TEVA-2019-US-1025346

PATIENT
  Sex: Male
  Weight: 68.1 kg

DRUGS (1)
  1. TRIAMCINOLONE [Suspect]
     Active Substance: TRIAMCINOLONE
     Indication: DERMATITIS
     Dosage: 120 GRAM JAR EVERY DAY
     Dates: start: 2009

REACTIONS (3)
  - Product intolerance [Unknown]
  - Skin atrophy [Unknown]
  - Pruritus [Unknown]
